FAERS Safety Report 5151914-9 (Version None)
Quarter: 2006Q4

REPORT INFORMATION
  Report Type: 
  Country: None (occurrence: None)
  Receive Date: 20061115
  Receipt Date: 20061115
  Transmission Date: 20070319
  Serious: Yes (Hospitalization)
  Sender: FDA-Public Use
  Company Number: JP-ALLERGAN-0607417US

PATIENT
  Sex: Male

DRUGS (4)
  1. DIAZEPAM [Concomitant]
     Indication: DRUG USE FOR UNKNOWN INDICATION
  2. DANTROLENE SODIUM [Concomitant]
     Indication: DRUG USE FOR UNKNOWN INDICATION
  3. BOTOX [Suspect]
     Indication: TORTICOLLIS
     Dosage: 20 UNITS, SINGLE
     Route: 030
     Dates: start: 20050327, end: 20050327
  4. BOTOX [Suspect]
     Dosage: 27.5 UNITS, SINGLE
     Route: 030
     Dates: start: 20060815, end: 20060815

REACTIONS (2)
  - ATELECTASIS [None]
  - PNEUMONIA [None]
